FAERS Safety Report 5037425-X (Version None)
Quarter: 2006Q2

REPORT INFORMATION
  Report Type: 
  Country: None (occurrence: None)
  Receive Date: 20060628
  Receipt Date: 20060621
  Transmission Date: 20061013
  Serious: Yes (Other)
  Sender: FDA-Public Use
  Company Number: 2006PK01387

PATIENT
  Age: 14933 Day
  Sex: Male

DRUGS (1)
  1. FOSCAVIR [Suspect]
     Indication: CYTOMEGALOVIRUS INFECTION
     Route: 042
     Dates: start: 20060510

REACTIONS (6)
  - CHILLS [None]
  - DIARRHOEA [None]
  - HYPOTENSION [None]
  - PARAESTHESIA [None]
  - TACHYCARDIA [None]
  - VOMITING [None]
